FAERS Safety Report 18483029 (Version 1)
Quarter: 2020Q4

REPORT INFORMATION
  Report Type: Spontaneous
  Country: IR (occurrence: IR)
  Receive Date: 20201109
  Receipt Date: 20201109
  Transmission Date: 20210114
  Serious: Yes (Life-Threatening, Hospitalization, Other)
  Sender: FDA-Public Use
  Company Number: IR-SCILEX PHARMACEUTICALS INC.-2020SCX00042

PATIENT
  Age: 64 Year
  Sex: Female

DRUGS (1)
  1. LIDOCAINE. [Suspect]
     Active Substance: LIDOCAINE
     Dosage: UNK, ONCE
     Route: 061

REACTIONS (9)
  - Cardiac arrest [Recovered/Resolved]
  - Left ventricular dysfunction [Recovered/Resolved]
  - Pyrexia [Recovered/Resolved]
  - Asthenia [Recovered/Resolved]
  - Paraesthesia [Recovered/Resolved]
  - Leukocytosis [Recovered/Resolved]
  - Pneumonia aspiration [Recovered/Resolved]
  - Aortic intramural haematoma [Recovered/Resolved]
  - Cardiotoxicity [Recovered/Resolved]
